FAERS Safety Report 7584139-8 (Version None)
Quarter: 2011Q2

REPORT INFORMATION
  Report Type: 
  Country: None (occurrence: None)
  Receive Date: 20110630
  Receipt Date: 20110627
  Transmission Date: 20111010
  Serious: Yes (Disabling, Other)
  Sender: FDA-Public Use
  Company Number: US-PFIZER INC-2011086395

PATIENT
  Sex: Female

DRUGS (9)
  1. CHANTIX [Suspect]
     Dosage: 0.5 MG, UNK
     Dates: start: 20071020, end: 20070101
  2. PREDNISONE [Concomitant]
     Dosage: UNK
     Dates: start: 20070301
  3. CHANTIX [Suspect]
     Indication: SMOKING CESSATION THERAPY
     Dosage: UNK
     Dates: start: 20070801, end: 20070101
  4. LORATADINE [Concomitant]
     Indication: HYPERSENSITIVITY
     Dosage: UNK
     Dates: start: 20070301
  5. PROMETRIUM [Concomitant]
     Indication: INFECTION
     Dosage: UNK
     Dates: start: 20061001, end: 20100101
  6. CHANTIX [Suspect]
     Dosage: UNK
     Dates: start: 20071201, end: 20090401
  7. CHANTIX [Suspect]
     Dosage: 0.5 MG, UNK
     Dates: start: 20090420, end: 20090101
  8. AZITHROMYCIN [Concomitant]
     Indication: INFECTION
     Dosage: UNK
     Dates: start: 20060101, end: 20100101
  9. BIAXIN [Concomitant]
     Indication: INFECTION
     Dosage: UNK, AS NEEDED
     Dates: start: 20011201, end: 20100101

REACTIONS (11)
  - SUICIDAL IDEATION [None]
  - ANXIETY [None]
  - AMNESIA [None]
  - MENTAL DISORDER [None]
  - RESTLESSNESS [None]
  - HEADACHE [None]
  - DEPRESSION [None]
  - SUICIDE ATTEMPT [None]
  - INTENTIONAL OVERDOSE [None]
  - MOOD SWINGS [None]
  - INSOMNIA [None]
